FAERS Safety Report 4595208-9 (Version None)
Quarter: 2005Q1

REPORT INFORMATION
  Report Type: 
  Country: None (occurrence: None)
  Receive Date: 20050224
  Receipt Date: 20050216
  Transmission Date: 20050727
  Serious: Yes (Hospitalization, Other)
  Sender: FDA-Public Use
  Company Number: 2005032414

PATIENT
  Sex: Female
  Weight: 108.8633 kg

DRUGS (4)
  1. LIPITOR [Suspect]
     Indication: BLOOD CHOLESTEROL INCREASED
     Dosage: 20 MG (20 MG, 1 IN 1 D), ORAL
     Route: 048
     Dates: end: 20041101
  2. URSODIOL [Suspect]
     Indication: ILL-DEFINED DISORDER
     Dosage: (1200 MG), ORAL
     Route: 048
     Dates: end: 20040701
  3. DRUG, UNSPECIFIED [Suspect]
     Indication: HYPERTENSION
  4. LEVOTHYROXINE SODIUM [Concomitant]

REACTIONS (3)
  - NON-HODGKIN'S LYMPHOMA [None]
  - PANCREATITIS ACUTE [None]
  - PANCREATITIS RELAPSING [None]
